FAERS Safety Report 8248629-7 (Version None)
Quarter: 2012Q1

REPORT INFORMATION
  Report Type: 
  Country: None (occurrence: None)
  Receive Date: 20120330
  Receipt Date: 20120323
  Transmission Date: 20120608
  Serious: Yes (Hospitalization)
  Sender: FDA-Public Use
  Company Number: AU-TEVA-330077USA

PATIENT
  Sex: Female
  Weight: 95.7 kg

DRUGS (9)
  1. IRBESARTAN AND HYDROCHLOROTHIAZIDE [Concomitant]
     Dates: start: 19980901
  2. TREANDA [Suspect]
     Dosage: UID/QD
     Route: 042
     Dates: start: 20120220
  3. ASPIRIN [Concomitant]
  4. PANTOPRAZOLE SODIUM [Concomitant]
     Dates: start: 20090101
  5. BETAMETHASONE DIPROPIONATE [Concomitant]
     Dates: start: 20120207
  6. TREANDA [Suspect]
     Dosage: UID/QD
     Route: 042
     Dates: start: 20120130, end: 20120221
  7. BUDESONIDE W/FORMOTEROL FUMARATE [Concomitant]
     Dates: start: 20111212
  8. TREANDA [Suspect]
     Indication: B-CELL LYMPHOMA
     Dosage: UID/QD
     Route: 042
     Dates: start: 20120109, end: 20120110
  9. ACETAMINOPHEN [Concomitant]
     Dates: start: 20060901

REACTIONS (1)
  - LIMB INJURY [None]
